FAERS Safety Report 9070185 (Version 1)
Quarter: 2013Q1

REPORT INFORMATION
  Report Type: Report from Study
  Country: US (occurrence: US)
  Receive Date: 20130129
  Receipt Date: 20130129
  Transmission Date: 20140127
  Serious: No
  Sender: FDA-Public Use
  Company Number: US-ABBOTT-12P-163-0925160-00

PATIENT
  Age: 58 Year
  Sex: Female

DRUGS (10)
  1. HUMIRA 40 MG/0.8 ML PEN [Suspect]
     Indication: ANKYLOSING SPONDYLITIS
     Dates: start: 20120405
  2. INH [Concomitant]
     Indication: MYCOBACTERIUM TUBERCULOSIS COMPLEX TEST POSITIVE
     Dosage: ONCE DAILY
     Dates: start: 20120402
  3. INH [Concomitant]
     Indication: PROPHYLAXIS
  4. TRAZODONE [Concomitant]
     Indication: DEPRESSION
     Dosage: 150 MG DAILY
  5. AMBIEN CR [Concomitant]
     Indication: INSOMNIA
     Dosage: EVERY NIGHT
  6. FUROSEMIDE [Concomitant]
     Indication: DIURETIC THERAPY
  7. POTASSIUM [Concomitant]
     Indication: PRODUCT USED FOR UNKNOWN INDICATION
     Dosage: 20 MEQ DAILY
  8. PREDNISONE [Concomitant]
     Indication: PRODUCT USED FOR UNKNOWN INDICATION
     Dosage: 10 MG DAILY
  9. PREDNISONE [Concomitant]
     Dosage: 9 MG DAILY
  10. PREDNISONE [Concomitant]
     Dosage: 8 MG DAILY
     Dates: start: 20120413

REACTIONS (2)
  - Abdominal pain upper [Not Recovered/Not Resolved]
  - Diarrhoea [Not Recovered/Not Resolved]
